FAERS Safety Report 5425836-X (Version None)
Quarter: 2007Q3

REPORT INFORMATION
  Report Type: 
  Country: None (occurrence: None)
  Receive Date: 20070824
  Receipt Date: 20070824
  Transmission Date: 20080115
  Serious: Yes (Other)
  Sender: FDA-Public Use
  Company Number: None

PATIENT
  Sex: Female
  Weight: 88.4514 kg

DRUGS (2)
  1. EFFEXOR XR [Suspect]
     Indication: ANXIETY
     Dosage: 1 X DAILY
  2. ZOLOFT [Suspect]
     Indication: ANXIETY
     Dosage: 1 X DAILY

REACTIONS (7)
  - BODY TEMPERATURE INCREASED [None]
  - COORDINATION ABNORMAL [None]
  - DIARRHOEA [None]
  - HYPERTENSION [None]
  - NAUSEA [None]
  - RESTLESSNESS [None]
  - SEROTONIN SYNDROME [None]
